FAERS Safety Report 8154112-X (Version None)
Quarter: 2012Q1

REPORT INFORMATION
  Report Type: 
  Country: None (occurrence: None)
  Receive Date: 20120221
  Receipt Date: 20120216
  Transmission Date: 20120608
  Serious: Yes (Hospitalization, Disabling)
  Sender: FDA-Public Use
  Company Number: US-MERCK-1108USA03399

PATIENT
  Sex: Female

DRUGS (3)
  1. FOSAMAX [Suspect]
     Route: 048
     Dates: start: 19970101, end: 20000401
  2. FOSAMAX [Suspect]
     Indication: OSTEOPOROSIS
     Route: 048
     Dates: start: 20010101, end: 20060101
  3. EVISTA [Concomitant]
     Indication: OSTEOPOROSIS
     Route: 065
     Dates: start: 20000101, end: 20010101

REACTIONS (9)
  - BONE DISORDER [None]
  - DIABETES MELLITUS [None]
  - FRACTURE [None]
  - FOOT FRACTURE [None]
  - ANKLE FRACTURE [None]
  - BLOOD CHOLESTEROL INCREASED [None]
  - HIGH TURNOVER OSTEOPATHY [None]
  - HYPERTENSION [None]
  - FEMUR FRACTURE [None]
